FAERS Safety Report 6536021-2 (Version None)
Quarter: 2010Q1

REPORT INFORMATION
  Report Type: 
  Country: None (occurrence: None)
  Receive Date: 20100105
  Receipt Date: 20091221
  Transmission Date: 20100710
  Serious: Yes (Death, Life-Threatening, Hospitalization)
  Sender: FDA-Public Use
  Company Number: 2009003677

PATIENT
  Age: 76 Year
  Sex: Male

DRUGS (2)
  1. TARCEVA [Suspect]
     Indication: NON-SMALL CELL LUNG CANCER
     Dosage: (100 MG), ORAL
     Route: 048
     Dates: start: 20091104
  2. FRAGMIN [Concomitant]

REACTIONS (3)
  - EMBOLIC STROKE [None]
  - MYOCARDIAL INFARCTION [None]
  - THROMBOCYTOPENIA [None]
